FAERS Safety Report 9894026 (Version 3)
Quarter: 2014Q1

REPORT INFORMATION
  Report Type: Spontaneous
  Country: US (occurrence: US)
  Receive Date: 20140213
  Receipt Date: 20140325
  Transmission Date: 20141002
  Serious: No
  Sender: FDA-Public Use
  Company Number: US-PFIZER INC-2014036788

PATIENT
  Age: 77 Year
  Sex: Female

DRUGS (1)
  1. ALDACTONE [Suspect]
     Indication: HYPERALDOSTERONISM
     Dosage: UNK, 2X/DAY
     Route: 048
     Dates: start: 20140206

REACTIONS (1)
  - Somnolence [Recovered/Resolved]
